FAERS Safety Report 11071634 (Version 1)
Quarter: 2015Q2

REPORT INFORMATION
  Report Type: Spontaneous
  Country: AT (occurrence: AT)
  Receive Date: 20150428
  Receipt Date: 20150428
  Transmission Date: 20150821
  Serious: Yes (Hospitalization)
  Sender: FDA-Public Use
  Company Number: AT-BAYER-2015-141132

PATIENT
  Sex: Male

DRUGS (1)
  1. ASPIRIN. [Suspect]
     Active Substance: ASPIRIN
     Indication: BONE CONTUSION
     Dosage: 3 G, FREQUENCY UNSPECIFIED

REACTIONS (6)
  - Gastrointestinal mucosal disorder [Recovering/Resolving]
  - Shock [Recovering/Resolving]
  - Gastritis erosive [Recovering/Resolving]
  - Multi-organ failure [Recovering/Resolving]
  - Gastrointestinal haemorrhage [Recovering/Resolving]
  - Thrombocytopenia [Recovering/Resolving]
